FAERS Safety Report 4493941-0 (Version None)
Quarter: 2004Q4

REPORT INFORMATION
  Report Type: 
  Country: None (occurrence: None)
  Receive Date: 20041102
  Receipt Date: 20041102
  Transmission Date: 20050328
  Serious: Yes (Hospitalization)
  Sender: FDA-Public Use
  Company Number: None

PATIENT
  Age: 75 Year
  Sex: Male
  Weight: 108 kg

DRUGS (1)
  1. LEVOFLOXACIN [Suspect]
     Indication: ARTHRITIS BACTERIAL
     Dosage: 500 MG Q/DAY ORAL
     Route: 048
     Dates: start: 20040823, end: 20041015

REACTIONS (3)
  - CLOSTRIDIAL INFECTION [None]
  - DIARRHOEA [None]
  - DRUG RESISTANCE [None]
